FAERS Safety Report 8141210-X (Version None)
Quarter: 2012Q1

REPORT INFORMATION
  Report Type: 
  Country: None (occurrence: None)
  Receive Date: 20120216
  Receipt Date: 20120206
  Transmission Date: 20120608
  Serious: Yes (Other)
  Sender: FDA-Public Use
  Company Number: JP-SANOFI-AVENTIS-2012SA009100

PATIENT
  Age: 40 Year
  Sex: Male

DRUGS (4)
  1. MEILAX [Concomitant]
  2. ZOLPIDEM [Suspect]
     Route: 048
     Dates: start: 20111101
  3. MIRTAZAPINE [Concomitant]
  4. MYONAL [Concomitant]

REACTIONS (1)
  - SPERMATOZOA PROGRESSIVE MOTILITY DECREASED [None]
